FAERS Safety Report 5708997-4 (Version None)
Quarter: 2008Q2

REPORT INFORMATION
  Report Type: 
  Country: None (occurrence: None)
  Receive Date: 20080416
  Receipt Date: 20080416
  Transmission Date: 20081010
  Serious: Yes (Hospitalization)
  Sender: FDA-Public Use
  Company Number: None

PATIENT
  Age: 86 Year
  Sex: Female
  Weight: 65 kg

DRUGS (14)
  1. DIGOXIN [Suspect]
     Indication: ATRIAL FIBRILLATION
     Dosage: 0.25MG DAILY PO
     Route: 048
  2. AMIODARONE HCL [Suspect]
     Indication: ATRIAL FIBRILLATION
     Dosage: 200MG BID PO
     Route: 048
  3. LISINOPRIL [Concomitant]
  4. LASIX [Concomitant]
  5. CLONIDINE HCL [Concomitant]
  6. SYNTHROID [Concomitant]
  7. PROTONIX [Concomitant]
  8. NITROGLYCERIN [Concomitant]
  9. MEGACE [Concomitant]
  10. SENNA [Concomitant]
  11. DIAZEPAM [Concomitant]
  12. METOCLOPRAMIDE [Concomitant]
  13. PROPOXYPHENE HYDROCHLORIDE [Concomitant]
  14. JANUVIA [Concomitant]

REACTIONS (5)
  - ASTHENIA [None]
  - BRADYCARDIA [None]
  - ELECTROCARDIOGRAM CHANGE [None]
  - INCORRECT DOSE ADMINISTERED [None]
  - NAUSEA [None]
